FAERS Safety Report 8372126-1 (Version None)
Quarter: 2012Q2

REPORT INFORMATION
  Report Type: 
  Country: None (occurrence: None)
  Receive Date: 20120521
  Receipt Date: 20120510
  Transmission Date: 20120825
  Serious: Yes (Other)
  Sender: FDA-Public Use
  Company Number: CA-BRISTOL-MYERS SQUIBB COMPANY-16587123

PATIENT
  Age: 73 Year
  Sex: Female

DRUGS (12)
  1. JANUVIA [Concomitant]
     Route: 042
     Dates: start: 20100101
  2. DIAMICRON [Concomitant]
     Route: 048
     Dates: start: 20100101
  3. CISPLATIN [Suspect]
     Indication: NON-SMALL CELL LUNG CANCER
     Route: 042
     Dates: start: 20120327
  4. VINORELBINE [Suspect]
     Indication: NON-SMALL CELL LUNG CANCER
     Route: 042
     Dates: start: 20120327
  5. SYNTHROID [Concomitant]
     Dosage: ALTERNATING DAYS
     Dates: start: 19990101
  6. CETUXIMAB [Suspect]
     Indication: NON-SMALL CELL LUNG CANCER
     Route: 042
     Dates: start: 20120327
  7. METFORMIN HCL [Concomitant]
     Route: 048
     Dates: start: 20000101
  8. AVAPRO [Concomitant]
     Route: 048
     Dates: start: 20090101
  9. DEXAMETHASONE [Concomitant]
     Dosage: 4MG BID*3 DAYS EACH CYCLE
     Route: 048
     Dates: start: 20120327
  10. DETROL LA [Concomitant]
     Route: 048
     Dates: start: 20090101
  11. CRESTOR [Concomitant]
     Route: 048
     Dates: start: 20100101
  12. ONDANSETRON [Concomitant]
     Dosage: 8MG BID*3DAYS EACH CYCLE
     Route: 048
     Dates: start: 20120327

REACTIONS (1)
  - PULMONARY EMBOLISM [None]
